FAERS Safety Report 10032898 (Version 1)
Quarter: 2014Q1

REPORT INFORMATION
  Report Type: Spontaneous
  Country: US (occurrence: US)
  Receive Date: 20140324
  Receipt Date: 20140324
  Transmission Date: 20141002
  Serious: No
  Sender: FDA-Public Use
  Company Number: US-PFIZER INC-2014082333

PATIENT
  Sex: Male

DRUGS (4)
  1. ADVIL PM [Suspect]
     Dosage: UNK
     Dates: end: 20140319
  2. ADVIL PM [Suspect]
     Dosage: 2 IBUPROFEN,DIPHENHYDRAMINE AT NIGHT
     Dates: start: 20140319
  3. IBUPROFEN [Suspect]
     Dosage: UNK
     Dates: end: 20140320
  4. IBUPROFEN [Suspect]
     Dosage: 3 IBUPROFEN IN THE MORNING
     Dates: start: 20140320

REACTIONS (3)
  - Extra dose administered [Unknown]
  - Somnolence [Unknown]
  - Hypoaesthesia [Unknown]
